FAERS Safety Report 10630955 (Version 1)
Quarter: 2014Q4

REPORT INFORMATION
  Report Type: Spontaneous
  Country: US (occurrence: US)
  Receive Date: 20141205
  Receipt Date: 20141205
  Transmission Date: 20150529
  Serious: Yes (Hospitalization)
  Sender: FDA-Public Use
  Company Number: US-BRISTOL-MYERS SQUIBB COMPANY-21443411

PATIENT
  Age: 68 Year
  Sex: Male
  Weight: 102.04 kg

DRUGS (4)
  1. SUTENT [Concomitant]
     Active Substance: SUNITINIB MALATE
  2. NYSTATIN. [Concomitant]
     Active Substance: NYSTATIN
  3. SYNTHROID [Concomitant]
     Active Substance: LEVOTHYROXINE SODIUM
  4. ELIQUIS [Suspect]
     Active Substance: APIXABAN

REACTIONS (2)
  - Haematuria [Unknown]
  - Haemoglobin decreased [Unknown]
